FAERS Safety Report 5712966-8 (Version None)
Quarter: 2008Q2

REPORT INFORMATION
  Report Type: 
  Country: None (occurrence: None)
  Receive Date: 20080418
  Receipt Date: 20080410
  Transmission Date: 20081010
  Serious: Yes (Life-Threatening, Hospitalization, Disabling)
  Sender: FDA-Public Use
  Company Number: 028-C5013-08031901

PATIENT
  Age: 70 Year
  Sex: Female

DRUGS (2)
  1. CC-5013 (LENALIDOMIDE) (CAPSULES) [Suspect]
     Indication: MULTIPLE MYELOMA
     Dosage: 25 MG, QD X21 DAYS, ORAL
     Route: 048
     Dates: start: 20080312, end: 20080325
  2. DEXAMETHASONE TAB [Suspect]
     Indication: MULTIPLE MYELOMA
     Dosage: 40 MG, 4 DAYS ON 4 DAYS OFF
     Dates: start: 20080312

REACTIONS (5)
  - BLOOD LACTIC ACID INCREASED [None]
  - FIBRIN D DIMER INCREASED [None]
  - METABOLIC ACIDOSIS [None]
  - RENAL FAILURE ACUTE [None]
  - RIGHT VENTRICULAR FAILURE [None]
